FAERS Safety Report 13980432 (Version 2)
Quarter: 2017Q4

REPORT INFORMATION
  Report Type: Report from Study
  Country: None (occurrence: US)
  Receive Date: 20170918
  Receipt Date: 20171011
  Transmission Date: 20180321
  Serious: Yes (Hospitalization)
  Sender: FDA-Public Use
  Company Number: US-ABBVIE-17K-163-2101233-00

PATIENT
  Sex: Male
  Weight: 70.37 kg

DRUGS (1)
  1. HUMIRA [Suspect]
     Active Substance: ADALIMUMAB
     Indication: RHEUMATOID ARTHRITIS
     Route: 058
     Dates: start: 2011, end: 20170601

REACTIONS (11)
  - Intestinal obstruction [Recovering/Resolving]
  - Ulcer [Unknown]
  - Hypophagia [Not Recovered/Not Resolved]
  - Type 2 diabetes mellitus [Recovering/Resolving]
  - Intestinal ulcer [Recovering/Resolving]
  - Post procedural complication [Unknown]
  - Post procedural complication [Unknown]
  - Hyperlipidaemia [Recovering/Resolving]
  - Post procedural infection [Unknown]
  - Cholelithiasis [Recovered/Resolved]
  - Weight decreased [Recovered/Resolved]

NARRATIVE: CASE EVENT DATE: 2016
